FAERS Safety Report 4915254-2 (Version None)
Quarter: 2006Q1

REPORT INFORMATION
  Report Type: 
  Country: None (occurrence: None)
  Receive Date: 20060216
  Receipt Date: 20060216
  Transmission Date: 20060701
  Serious: Yes (Hospitalization)
  Sender: FDA-Public Use
  Company Number: None

PATIENT
  Sex: Female
  Weight: 65.7716 kg

DRUGS (2)
  1. CELEBREX [Suspect]
     Indication: ANTIINFLAMMATORY THERAPY
     Dosage: UNKNOWN, PO  PRIOR TO ADMISSION
     Route: 048
  2. CYMBALTA [Concomitant]

REACTIONS (2)
  - PRURITUS [None]
  - RASH [None]
